FAERS Safety Report 8184300-8 (Version None)
Quarter: 2012Q1

REPORT INFORMATION
  Report Type: 
  Country: None (occurrence: None)
  Receive Date: 20120207
  Receipt Date: 20110215
  Transmission Date: 20120608
  Serious: Yes (Other)
  Sender: FDA-Public Use
  Company Number: 2011027621

PATIENT
  Sex: Female
  Weight: 46.7205 kg

DRUGS (15)
  1. VIVAGLOBIN [Suspect]
  2. PHENOBARBITAL TAB [Concomitant]
  3. UROCIT-K SR (POTASSIUM CITRATE) [Concomitant]
  4. KEPPRA [Concomitant]
  5. VIVAGLOBIN [Suspect]
  6. VIVAGLOBIN [Suspect]
  7. VIVAGLOBIN [Suspect]
  8. VIVAGLOBIN [Suspect]
  9. VIVAGLOBIN [Suspect]
  10. VIVAGLOBIN [Suspect]
     Indication: IMMUNE SYSTEM DISORDER
     Dosage: SEE IMAGE
     Route: 058
     Dates: start: 20100301, end: 20110201
  11. OVAZA (OMEGA-3 FATTY ACIDS) [Concomitant]
  12. MAGNESIUM OXIDE (MAGNESIUM OXIDE) [Concomitant]
  13. VIVAGLOBIN [Suspect]
  14. PRILOSEC [Concomitant]
  15. PATANASE 0.6% NASAL SPRAY (OLOPATADINE) [Concomitant]

REACTIONS (1)
  - CONVULSION [None]
